FAERS Safety Report 6928413-4 (Version None)
Quarter: 2010Q3

REPORT INFORMATION
  Report Type: 
  Country: None (occurrence: None)
  Receive Date: 20100812
  Receipt Date: 20100806
  Transmission Date: 20110219
  Serious: Yes (Other)
  Sender: FDA-Public Use
  Company Number: 015338

PATIENT
  Sex: Female
  Weight: 1.1 kg

DRUGS (1)
  1. KEPPRA [Suspect]
     Dosage: 10 MG TOTAL, PO SOLUTION (0.1ML-10MG) USED AS INFUISION INTRAVENOUS
     Route: 042

REACTIONS (1)
  - INCORRECT ROUTE OF DRUG ADMINISTRATION [None]
